FAERS Safety Report 16154698 (Version 1)
Quarter: 2019Q2

REPORT INFORMATION
  Report Type: Spontaneous
  Country: UA (occurrence: UA)
  Receive Date: 20190403
  Receipt Date: 20190403
  Transmission Date: 20190711
  Serious: Yes (Hospitalization)
  Sender: FDA-Public Use
  Company Number: UA-ASTRAZENECA-2019SE49247

PATIENT
  Age: 25371 Day
  Sex: Male
  Weight: 75 kg

DRUGS (5)
  1. ASPIRIN. [Concomitant]
     Active Substance: ASPIRIN
  2. BRILINTA [Suspect]
     Active Substance: TICAGRELOR
     Indication: MYOCARDIAL INFARCTION
     Dosage: 90
     Route: 048
     Dates: start: 20190215
  3. ROXERA [Concomitant]
     Active Substance: ROSUVASTATIN CALCIUM
  4. METOPROLOL. [Concomitant]
     Active Substance: METOPROLOL
     Dosage: 50 MG 3 TIMES A DAY
  5. RAMIPRIL. [Concomitant]
     Active Substance: RAMIPRIL
     Dosage: 10 MG

REACTIONS (1)
  - Vascular stent stenosis [Unknown]

NARRATIVE: CASE EVENT DATE: 20190315
